FAERS Safety Report 4922649-X (Version None)
Quarter: 2006Q1

REPORT INFORMATION
  Report Type: 
  Country: None (occurrence: None)
  Receive Date: 20060224
  Receipt Date: 20060206
  Transmission Date: 20060701
  Serious: Yes (Death, Hospitalization)
  Sender: FDA-Public Use
  Company Number: IT-NOVOPROD-250707

PATIENT
  Age: 85 Year
  Sex: Male
  Weight: 82 kg

DRUGS (1)
  1. NOVOSEVEN [Suspect]
     Indication: ACQUIRED HAEMOPHILIA
     Dosage: 90 UG/KG, UNK
     Dates: start: 20050720, end: 20050721

REACTIONS (1)
  - DRUG INEFFECTIVE [None]
